FAERS Safety Report 18750925 (Version 2)
Quarter: 2021Q4

REPORT INFORMATION
  Report Type: Report from Study
  Country: CN (occurrence: CN)
  Receive Date: 20210118
  Receipt Date: 20211216
  Transmission Date: 20220303
  Serious: Yes (Hospitalization, Other)
  Sender: FDA-Public Use
  Company Number: CN-AUROBINDO-AUR-APL-2021-002075

PATIENT
  Age: 50 Year
  Sex: Male
  Weight: 72 kg

DRUGS (3)
  1. EVOMELA [Suspect]
     Active Substance: MELPHALAN HYDROCHLORIDE
     Indication: Plasma cell myeloma
     Dosage: 177 MILLIGRAM, ONCE A DAY
     Route: 042
     Dates: start: 20201218, end: 20201219
  2. CALCIUM CARBONATE [Concomitant]
     Active Substance: CALCIUM CARBONATE
     Indication: Osteoporosis
     Dosage: UNK
     Route: 065
  3. VITAMIN D3 [Concomitant]
     Active Substance: CHOLECALCIFEROL
     Indication: Osteoporosis
     Dosage: 0.6 GRAM, ONCE A DAY
     Route: 065

REACTIONS (14)
  - Infection [Recovered/Resolved with Sequelae]
  - Blood lactate dehydrogenase increased [Recovered/Resolved]
  - White blood cell count increased [Recovered/Resolved]
  - Hypokalaemia [Recovered/Resolved]
  - Amylase increased [Recovered/Resolved]
  - Alpha hydroxybutyrate dehydrogenase increased [Recovered/Resolved]
  - Hyperglycaemia [Recovered/Resolved]
  - Hepatic function abnormal [Recovering/Resolving]
  - Alanine aminotransferase increased [Recovered/Resolved]
  - Diarrhoea [Recovered/Resolved]
  - Decreased appetite [Recovered/Resolved]
  - Insomnia [Recovered/Resolved]
  - Pyrexia [Recovered/Resolved]
  - Gamma-glutamyltransferase increased [Recovered/Resolved]

NARRATIVE: CASE EVENT DATE: 20201219
